FAERS Safety Report 18143144 (Version 1)
Quarter: 2020Q3

REPORT INFORMATION
  Report Type: Spontaneous
  Country: JP (occurrence: JP)
  Receive Date: 20200813
  Receipt Date: 20200813
  Transmission Date: 20201103
  Serious: Yes (Death, Other)
  Sender: FDA-Public Use
  Company Number: JP-AMGEN-JPNSP2020128501

PATIENT
  Age: 84 Year
  Sex: Male

DRUGS (1)
  1. DARBEPOETIN ALFA [Suspect]
     Active Substance: DARBEPOETIN ALFA
     Indication: CHRONIC KIDNEY DISEASE
     Dosage: 60 UG, 1X/MONTH
     Route: 065
     Dates: start: 20190906, end: 20200311

REACTIONS (3)
  - Subdural haematoma [Fatal]
  - Wound [Fatal]
  - Pneumonia [Fatal]

NARRATIVE: CASE EVENT DATE: 20200427
